FAERS Safety Report 9168127 (Version 1)
Quarter: 2013Q1

REPORT INFORMATION
  Report Type: Spontaneous
  Country: NO (occurrence: None)
  Receive Date: 20130307
  Receipt Date: 20130307
  Transmission Date: 20140127
  Serious: Yes (Death, Hospitalization)
  Sender: FDA-Public Use
  Company Number: 2010US-40574

PATIENT
  Age: 82 Year
  Sex: 0

DRUGS (4)
  1. SIMVASTATIN [Suspect]
     Indication: HYPERCHOLESTEROLAEMIA
  2. WARFARIN [Suspect]
     Indication: DEEP VEIN THROMBOSIS
  3. WARFARIN [Suspect]
     Indication: PULMONARY EMBOLISM
  4. ASPIRIN (ASPIRIN) [Concomitant]

REACTIONS (8)
  - Drug interaction [None]
  - International normalised ratio increased [None]
  - Cerebral haemorrhage [None]
  - Blood pressure increased [None]
  - Epistaxis [None]
  - Contusion [None]
  - Constipation [None]
  - Respiratory arrest [None]
